FAERS Safety Report 7101178-1 (Version None)
Quarter: 2010Q4

REPORT INFORMATION
  Report Type: 
  Country: None (occurrence: None)
  Receive Date: 20101114
  Receipt Date: 20101102
  Transmission Date: 20110411
  Serious: Yes (Other)
  Sender: FDA-Public Use
  Company Number: US-BRISTOL-MYERS SQUIBB COMPANY-15364607

PATIENT
  Age: 68 Year

DRUGS (5)
  1. ONGLYZA [Suspect]
  2. LISINOPRIL [Suspect]
  3. ALBUTEROL [Concomitant]
  4. PULMICORT [Concomitant]
  5. TRIAMTERENE [Concomitant]

REACTIONS (1)
  - ANGIOEDEMA [None]
